FAERS Safety Report 7591494-1 (Version None)
Quarter: 2011Q3

REPORT INFORMATION
  Report Type: 
  Country: None (occurrence: None)
  Receive Date: 20110701
  Receipt Date: 20110701
  Transmission Date: 20111222
  Serious: Yes (Other)
  Sender: FDA-Public Use
  Company Number: None

PATIENT
  Age: 48 Year
  Sex: Female
  Weight: 73.4827 kg

DRUGS (1)
  1. CYMBALTA [Suspect]
     Indication: BACK PAIN
     Dosage: 60MG 1 PER DAY
     Dates: start: 20110418, end: 20110626

REACTIONS (7)
  - CHROMATURIA [None]
  - DYSPNOEA [None]
  - HYPERTENSION [None]
  - NIGHTMARE [None]
  - PALPITATIONS [None]
  - CONFUSIONAL STATE [None]
  - PAIN [None]
